APPROVED DRUG PRODUCT: LEVETIRACETAM
Active Ingredient: LEVETIRACETAM
Strength: 100MG/ML
Dosage Form/Route: SOLUTION;ORAL
Application: A090079 | Product #001 | TE Code: AA
Applicant: QUAGEN PHARMACEUTICALS LLC
Approved: Apr 11, 2012 | RLD: No | RS: No | Type: RX